FAERS Safety Report 5032511-2 (Version None)
Quarter: 2006Q2

REPORT INFORMATION
  Report Type: 
  Country: None (occurrence: None)
  Receive Date: 20060622
  Receipt Date: 20060614
  Transmission Date: 20061013
  Serious: Yes (Hospitalization, Disabling)
  Sender: FDA-Public Use
  Company Number: PT-JNJFOC-20060603214

PATIENT
  Age: 39 Year
  Sex: Female

DRUGS (3)
  1. ORTHO EVRA [Suspect]
     Indication: CONTRACEPTION
     Route: 062
  2. WEIGHT LOSS MEDICATION [Concomitant]
     Route: 065
  3. CHROMIUM [Concomitant]
     Route: 065

REACTIONS (3)
  - FACIAL PALSY [None]
  - HEMIPLEGIA [None]
  - MONOPLEGIA [None]
